FAERS Safety Report 8894288 (Version 6)
Quarter: 2014Q1

REPORT INFORMATION
  Report Type: Spontaneous
  Country: US (occurrence: US)
  Receive Date: 20121108
  Receipt Date: 20140205
  Transmission Date: 20141002
  Serious: Yes (Hospitalization)
  Sender: FDA-Public Use
  Company Number: US-BIOGENIDEC-2012BI049520

PATIENT
  Age: 71 Year
  Sex: Female

DRUGS (2)
  1. AVONEX [Suspect]
     Indication: MULTIPLE SCLEROSIS
     Route: 030
     Dates: start: 19960601
  2. AVONEX [Suspect]
     Indication: MULTIPLE SCLEROSIS
     Route: 030
     Dates: start: 20100612, end: 20121006

REACTIONS (9)
  - Intestinal ulcer perforation [Recovered/Resolved]
  - Sepsis [Recovered/Resolved]
  - Malaise [Unknown]
  - Asthenia [Unknown]
  - Surgery [Not Recovered/Not Resolved]
  - Ill-defined disorder [Unknown]
  - Renal failure [Unknown]
  - Pneumonia [Unknown]
  - Fungal infection [Unknown]
